FAERS Safety Report 10925580 (Version 1)
Quarter: 2015Q1

REPORT INFORMATION
  Report Type: Spontaneous
  Country: IT (occurrence: IT)
  Receive Date: 20150318
  Receipt Date: 20150318
  Transmission Date: 20150721
  Serious: Yes (Other)
  Sender: FDA-Public Use
  Company Number: IT-TEVA-548367ACC

PATIENT
  Age: 79 Year
  Sex: Female
  Weight: 76 kg

DRUGS (1)
  1. CLOPIDOGREL [Suspect]
     Active Substance: CLOPIDOGREL BISULFATE
     Indication: MITRAL VALVE DISEASE
     Dosage: 1 DOSAGE FORMS DAILY;
     Route: 048
     Dates: start: 20141101, end: 20150101

REACTIONS (3)
  - Bronchospasm [Unknown]
  - Vertigo [Unknown]
  - Pruritus [Unknown]

NARRATIVE: CASE EVENT DATE: 20141115
